FAERS Safety Report 4712865-4 (Version None)
Quarter: 2005Q3

REPORT INFORMATION
  Report Type: 
  Country: None (occurrence: None)
  Receive Date: 20050712
  Receipt Date: 20050712
  Transmission Date: 20060218
  Serious: Yes (Other)
  Sender: FDA-Public Use
  Company Number: None

PATIENT
  Sex: Male
  Weight: 62.18 kg

DRUGS (1)
  1. INTERERFERON-ALPHA [Suspect]
     Indication: RENAL CELL CARCINOMA STAGE UNSPECIFIED
     Dosage: 9.0 MU SC 3X/WEEK.  CYCLE = 4 WEEEKS
     Route: 058
     Dates: start: 20041118

REACTIONS (6)
  - CHEST PAIN [None]
  - CORONARY ARTERY DISEASE [None]
  - DYSPNOEA [None]
  - LUNG INFILTRATION [None]
  - MEDIASTINAL MASS [None]
  - RENAL MASS [None]
